FAERS Safety Report 4697229-4 (Version None)
Quarter: 2005Q2

REPORT INFORMATION
  Report Type: 
  Country: None (occurrence: None)
  Receive Date: 20050622
  Receipt Date: 20050601
  Transmission Date: 20051028
  Serious: Yes (Hospitalization)
  Sender: FDA-Public Use
  Company Number: JP-GLAXOSMITHKLINE-B0383301A

PATIENT
  Age: 73 Year
  Sex: Female
  Weight: 50 kg

DRUGS (8)
  1. PAXIL [Suspect]
     Indication: DEPRESSION
     Dosage: 10MG PER DAY
     Route: 048
     Dates: start: 20050511, end: 20050518
  2. PLETAL [Concomitant]
     Indication: CEREBRAL INFARCTION
     Dosage: 150MG PER DAY
     Route: 048
     Dates: start: 20050501
  3. SLOW-K [Concomitant]
     Dosage: 2UNIT PER DAY
     Route: 048
     Dates: start: 20050506
  4. MENESIT [Concomitant]
     Indication: PARKINSONISM
     Dosage: 150MG PER DAY
     Route: 048
     Dates: start: 20050519
  5. GASMOTIN [Concomitant]
     Indication: DEPRESSION
     Dosage: 3UNIT PER DAY
     Route: 048
     Dates: start: 20050511, end: 20050526
  6. MEILAX [Concomitant]
     Indication: DEPRESSION
     Dosage: 2MG PER DAY
     Route: 048
     Dates: start: 20050511, end: 20050526
  7. TOLEDOMIN [Concomitant]
     Indication: DEPRESSION
     Route: 048
     Dates: start: 20050520
  8. FLUMARIN [Concomitant]
     Indication: URINARY TRACT INFECTION
     Dosage: 2G PER DAY
     Route: 042
     Dates: start: 20050503, end: 20050515

REACTIONS (3)
  - BLOOD CHLORIDE DECREASED [None]
  - BLOOD SODIUM DECREASED [None]
  - INAPPROPRIATE ANTIDIURETIC HORMONE SECRETION [None]
